FAERS Safety Report 11980546 (Version 1)
Quarter: 2016Q1

REPORT INFORMATION
  Report Type: Spontaneous
  Country: JP (occurrence: JP)
  Receive Date: 20160129
  Receipt Date: 20160129
  Transmission Date: 20160526
  Serious: Yes (Other)
  Sender: FDA-Public Use
  Company Number: JP-BRISTOL-MYERS SQUIBB COMPANY-17155722

PATIENT
  Age: 29 Year
  Sex: Female
  Weight: 56 kg

DRUGS (4)
  1. ABILIFY [Suspect]
     Active Substance: ARIPIPRAZOLE
     Indication: SCHIZOPHRENIA
     Dosage: 6 MG, QD
     Route: 048
     Dates: start: 20061112, end: 20061128
  2. ABILIFY [Suspect]
     Active Substance: ARIPIPRAZOLE
     Dosage: 9 MG, QD
     Route: 048
     Dates: start: 20100602, end: 20110329
  3. ABILIFY [Suspect]
     Active Substance: ARIPIPRAZOLE
     Dosage: 6 MG, QD
     Route: 048
     Dates: start: 20110330
  4. ABILIFY [Suspect]
     Active Substance: ARIPIPRAZOLE
     Dosage: 12 MG, QD
     Route: 048
     Dates: start: 20061129, end: 20100601

REACTIONS (6)
  - Maternal exposure during pregnancy [Recovered/Resolved]
  - Caesarean section [Unknown]
  - Suppressed lactation [Unknown]
  - Breast feeding [Unknown]
  - Off label use [Unknown]
  - Live birth [Unknown]

NARRATIVE: CASE EVENT DATE: 20121111
